FAERS Safety Report 19514113 (Version 8)
Quarter: 2022Q3

REPORT INFORMATION
  Report Type: Report from Study
  Country: US (occurrence: US)
  Receive Date: 20210710
  Receipt Date: 20220826
  Transmission Date: 20221027
  Serious: Yes (Life-Threatening, Hospitalization, Other)
  Sender: FDA-Public Use
  Company Number: NVSC2021US146298

PATIENT
  Age: 83 Year
  Sex: Male

DRUGS (1)
  1. ENTRESTO [Suspect]
     Active Substance: SACUBITRIL\VALSARTAN
     Indication: Cardiac failure
     Dosage: BID
     Route: 048

REACTIONS (9)
  - Haemoglobin decreased [Recovering/Resolving]
  - Gastrointestinal haemorrhage [Recovering/Resolving]
  - Blood pressure decreased [Recovering/Resolving]
  - Gastrointestinal infection [Recovering/Resolving]
  - Clostridium difficile infection [Unknown]
  - Anaemia [Unknown]
  - Productive cough [Unknown]
  - Gout [Unknown]
  - Asthenia [Unknown]

NARRATIVE: CASE EVENT DATE: 20220201
